FAERS Safety Report 15229121 (Version 1)
Quarter: 2018Q3

REPORT INFORMATION
  Report Type: Spontaneous
  Country: JP (occurrence: JP)
  Receive Date: 20180801
  Receipt Date: 20180801
  Transmission Date: 20181010
  Serious: Yes (Life-Threatening)
  Sender: FDA-Public Use
  Company Number: JP-ALLERGAN-1837956US

PATIENT
  Age: 68 Year
  Sex: Female
  Weight: 46 kg

DRUGS (15)
  1. URSODEOXYCHOLIC ACID ? BP [Suspect]
     Active Substance: URSODIOL
     Indication: PRODUCT USED FOR UNKNOWN INDICATION
     Dosage: 1 DF, TID
     Route: 048
  2. PARAMIDIN [Concomitant]
     Active Substance: BUCOLOME
     Dosage: 1 DF, QD
     Route: 048
  3. HALFDIGOXIN [Concomitant]
     Active Substance: DIGOXIN
     Dosage: 0.125 MG, QD
     Route: 048
  4. ALDACTONE [Concomitant]
     Active Substance: SPIRONOLACTONE
     Dosage: 1 DF, QD
     Route: 048
  5. AZULFIDINE EN?TABS [Concomitant]
     Active Substance: SULFASALAZINE
     Dosage: 1 DF, BID
     Route: 048
  6. METHOTREXATE. [Suspect]
     Active Substance: METHOTREXATE
     Dosage: 8 UNK, UNK
     Route: 065
  7. DIOVAN [Concomitant]
     Active Substance: VALSARTAN
     Dosage: 1 DF, QD
     Route: 048
  8. METHOTREXATE. [Suspect]
     Active Substance: METHOTREXATE
     Indication: RHEUMATOID ARTHRITIS
     Dosage: 8 MG, Q WEEK (TWICE/DAY IN THE MORNING AND EVENING))
     Route: 048
     Dates: end: 20180424
  9. LIPACREON [Concomitant]
     Active Substance: PANCRELIPASE
     Dosage: 4 DF, TID
  10. CAMOSTAT MESILATE [Concomitant]
     Active Substance: CAMOSTAT MESYLATE
     Dosage: 2 DF, TID
     Route: 048
  11. LASIX [Concomitant]
     Active Substance: FUROSEMIDE
     Dosage: 1 DF, QD
     Route: 048
  12. WARFARIN [Concomitant]
     Active Substance: WARFARIN
     Dosage: 0.75 MG, QD
     Route: 065
  13. CHOREITO [Concomitant]
     Dosage: 2.5 MG, TID
     Route: 065
  14. RABEPRAZOLE [Concomitant]
     Active Substance: RABEPRAZOLE
     Dosage: 1 DF, QD
     Route: 048
  15. VASOLAN [Concomitant]
     Active Substance: VERAPAMIL HYDROCHLORIDE
     Dosage: 2 DF, QD
     Route: 048

REACTIONS (1)
  - Pancytopenia [Recovered/Resolved]

NARRATIVE: CASE EVENT DATE: 20180502
